FAERS Safety Report 16366465 (Version 1)
Quarter: 2019Q3

REPORT INFORMATION
  Report Type: Spontaneous
  Country: US (occurrence: US)
  Receive Date: 20190528
  Receipt Date: 20190528
  Transmission Date: 20191004
  Serious: No
  Sender: FDA-Public Use
  Company Number: None

PATIENT
  Sex: Male

DRUGS (1)
  1. SULFAMETHOXAZOLE AND TRIMETHOPRIM [Suspect]
     Active Substance: SULFAMETHOXAZOLE\TRIMETHOPRIM
     Dates: start: 20190516, end: 20190526

REACTIONS (11)
  - Blister [None]
  - Chills [None]
  - Cough [None]
  - Urticaria [None]
  - Rash [None]
  - Pyrexia [None]
  - Abdominal discomfort [None]
  - Decreased appetite [None]
  - Ocular hyperaemia [None]
  - Nausea [None]
  - Eye irritation [None]
